FAERS Safety Report 25044186 (Version 1)
Quarter: 2025Q1

REPORT INFORMATION
  Report Type: Spontaneous
  Country: CN (occurrence: CN)
  Receive Date: 20250306
  Receipt Date: 20250306
  Transmission Date: 20250408
  Serious: Yes (Other)
  Sender: BEIGENE
  Company Number: CN-BEIGENE-BGN-2025-003305

PATIENT
  Age: 43 Year
  Weight: 62 kg

DRUGS (8)
  1. TISLELIZUMAB [Suspect]
     Active Substance: TISLELIZUMAB
     Indication: Lymphoma
  2. TISLELIZUMAB [Suspect]
     Active Substance: TISLELIZUMAB
  3. PEGASPARGASE [Concomitant]
     Active Substance: PEGASPARGASE
     Indication: Lymphoma
  4. PEGASPARGASE [Concomitant]
     Active Substance: PEGASPARGASE
  5. GEMCITABINE [Concomitant]
     Active Substance: GEMCITABINE
     Indication: Lymphoma
  6. GEMCITABINE [Concomitant]
     Active Substance: GEMCITABINE
  7. OXALIPLATIN [Concomitant]
     Active Substance: OXALIPLATIN
     Indication: Lymphoma
  8. OXALIPLATIN [Concomitant]
     Active Substance: OXALIPLATIN

REACTIONS (1)
  - Liver injury [Recovered/Resolved with Sequelae]
